FAERS Safety Report 5083042-5 (Version None)
Quarter: 2006Q3

REPORT INFORMATION
  Report Type: 
  Country: None (occurrence: None)
  Receive Date: 20060814
  Receipt Date: 20060803
  Transmission Date: 20061208
  Serious: Yes (Hospitalization)
  Sender: FDA-Public Use
  Company Number: 2006095197

PATIENT
  Age: 64 Year
  Sex: Male

DRUGS (4)
  1. QUINAPRIL HCL [Suspect]
     Indication: HYPERTENSION
  2. HYDROCHLOROTHIAZIDE [Suspect]
     Indication: HYPERTENSION
  3. ATENOLOL [Suspect]
     Indication: HYPERTENSION
  4. DILTIAZEM [Suspect]
     Indication: HYPERTENSION

REACTIONS (5)
  - BLOOD PRESSURE INCREASED [None]
  - CARDIAC ANEURYSM [None]
  - DYSPNOEA [None]
  - ELECTROCARDIOGRAM T WAVE INVERSION [None]
  - SINUS TACHYCARDIA [None]
